FAERS Safety Report 6034790-1 (Version None)
Quarter: 2009Q1

REPORT INFORMATION
  Report Type: 
  Country: None (occurrence: None)
  Receive Date: 20090112
  Receipt Date: 20090107
  Transmission Date: 20090719
  Serious: Yes (Hospitalization)
  Sender: FDA-Public Use
  Company Number: FR-JNJFOC-20090100750

PATIENT
  Age: 29 Year
  Sex: Male

DRUGS (8)
  1. HALDOL DECANOAS [Suspect]
     Indication: SCHIZOAFFECTIVE DISORDER
     Route: 065
     Dates: start: 20081208
  2. HALDOL [Suspect]
     Indication: SCHIZOAFFECTIVE DISORDER
     Route: 048
  3. LARGACTIL [Concomitant]
     Indication: SCHIZOAFFECTIVE DISORDER
     Route: 065
  4. ZYPREXA [Concomitant]
     Route: 065
  5. ZYPREXA [Concomitant]
     Dosage: 12 0R 13-DEC-2008
     Route: 065
  6. LOXAPINE HCL [Concomitant]
     Route: 065
  7. DEPAKOTE [Concomitant]
     Route: 065
  8. DEPAKOTE [Concomitant]
     Route: 065

REACTIONS (2)
  - NEUROLEPTIC MALIGNANT SYNDROME [None]
  - RHABDOMYOLYSIS [None]
